FAERS Safety Report 5211898-1 (Version None)
Quarter: 2007Q1

REPORT INFORMATION
  Report Type: 
  Country: None (occurrence: None)
  Receive Date: 20070116
  Receipt Date: 20070116
  Transmission Date: 20070707
  Serious: Yes (Other)
  Sender: FDA-Public Use
  Company Number: None

PATIENT
  Age: 75 Year
  Sex: Female
  Weight: 49.8957 kg

DRUGS (2)
  1. PHENERGAN [Suspect]
     Indication: NAUSEA
     Dosage: INJECTION ONE
  2. PHENERGAN [Suspect]
     Indication: VOMITING
     Dosage: INJECTION ONE

REACTIONS (2)
  - APHASIA [None]
  - SPEECH DISORDER [None]
